FAERS Safety Report 13443507 (Version 1)
Quarter: 2017Q2

REPORT INFORMATION
  Report Type: Spontaneous
  Country: NL (occurrence: NL)
  Receive Date: 20170414
  Receipt Date: 20170414
  Transmission Date: 20170830
  Serious: Yes (Death, Hospitalization)
  Sender: FDA-Public Use
  Company Number: NL-TEVA-757682ACC

PATIENT
  Age: 67 Year
  Sex: Female
  Weight: 64 kg

DRUGS (6)
  1. CALCI CHEW D3 KAUWTABLET 500MG/800IE [Concomitant]
     Active Substance: CALCIUM CARBONATE\CHOLECALCIFEROL
     Indication: RHEUMATOID ARTHRITIS
     Dosage: NOT REGISTERED
     Route: 048
  2. METHOTREXATE. [Suspect]
     Active Substance: METHOTREXATE
     Indication: RHEUMATOID ARTHRITIS
     Route: 065
  3. FOLIUMZUUR TABLET 5MG [Concomitant]
     Active Substance: FOLIC ACID
     Indication: RHEUMATOID ARTHRITIS
     Route: 048
  4. NAPROXEN TABLET 500MG [Concomitant]
     Active Substance: NAPROXEN
     Indication: RHEUMATOID ARTHRITIS
     Dosage: 1000 MILLIGRAM DAILY;
     Route: 065
  5. BENEPALI INJVLST 50MG/ML PEN 1ML [Suspect]
     Active Substance: ETANERCEPT
     Indication: RHEUMATOID ARTHRITIS
     Route: 058
     Dates: start: 20170112
  6. OMEPRAZOL CAPSULE MGA 20MG [Concomitant]
     Indication: RHEUMATOID ARTHRITIS
     Dosage: 20 MILLIGRAM DAILY; PROLONGED-RELEASE CAPSULE
     Route: 048

REACTIONS (7)
  - Therapeutic response unexpected [Fatal]
  - Eosinophilia [Fatal]
  - Atrial fibrillation [Unknown]
  - Bacterial infection [Unknown]
  - Renal failure [Fatal]
  - Sepsis [Fatal]
  - Interstitial lung disease [Fatal]

NARRATIVE: CASE EVENT DATE: 20170208
